FAERS Safety Report 5378164-5 (Version None)
Quarter: 2007Q3

REPORT INFORMATION
  Report Type: 
  Country: None (occurrence: None)
  Receive Date: 20070705
  Receipt Date: 20070627
  Transmission Date: 20080115
  Serious: Yes (Hospitalization, Other)
  Sender: FDA-Public Use
  Company Number: PHEH2007US04123

PATIENT
  Age: 78 Year
  Sex: Male

DRUGS (11)
  1. ZELNORM [Suspect]
     Indication: IRRITABLE BOWEL SYNDROME
     Dosage: 6 MG, BID
     Route: 048
     Dates: start: 20050321, end: 20070402
  2. FLOMAX [Concomitant]
  3. WARFARIN SODIUM [Concomitant]
  4. PREVACID [Concomitant]
  5. STOOL SOFTENER [Concomitant]
  6. THEO [Concomitant]
     Indication: CHRONIC OBSTRUCTIVE PULMONARY DISEASE
     Dosage: 100 MG, BID
     Route: 048
     Dates: start: 20000101
  7. PROTONIX [Concomitant]
     Indication: GASTRITIS
     Dosage: 40 MG, QD
     Route: 048
     Dates: start: 20040101
  8. SPIRIVA [Concomitant]
     Indication: CHRONIC OBSTRUCTIVE PULMONARY DISEASE
     Dosage: 18 UG, QD
     Dates: start: 20040101
  9. LEVOTHYROXINE SODIUM [Concomitant]
     Indication: HYPOTHYROIDISM
     Dosage: 50 UG, QD
     Route: 048
     Dates: start: 20000101
  10. EFFEXOR [Concomitant]
     Indication: DEPRESSION
     Dosage: 375 MG, QD
     Route: 048
     Dates: start: 20020101
  11. NITROSTAT [Concomitant]
     Dosage: 0.4 MG, PRN
     Route: 060

REACTIONS (9)
  - ABDOMINAL PAIN UPPER [None]
  - ANGINA PECTORIS [None]
  - ARTERIOGRAM CORONARY ABNORMAL [None]
  - CHEST PAIN [None]
  - DEPRESSED MOOD [None]
  - DIARRHOEA [None]
  - GASTROINTESTINAL TUBE INSERTION [None]
  - IRRITABLE BOWEL SYNDROME [None]
  - WEIGHT DECREASED [None]
